FAERS Safety Report 18627133 (Version 1)
Quarter: 2020Q4

REPORT INFORMATION
  Report Type: Spontaneous
  Country: DE (occurrence: DE)
  Receive Date: 20201217
  Receipt Date: 20201217
  Transmission Date: 20210114
  Serious: Yes (Death, Other)
  Sender: FDA-Public Use
  Company Number: DE-ROCHE-2726880

PATIENT
  Sex: Female

DRUGS (6)
  1. LEMTRADA [Suspect]
     Active Substance: ALEMTUZUMAB
     Indication: MULTIPLE SCLEROSIS
     Dosage: 12 MG
     Route: 041
     Dates: start: 201612
  2. IBUPROFEN. [Concomitant]
     Active Substance: IBUPROFEN
     Dosage: OCCASIONALLY
     Route: 065
  3. COTRIM [Concomitant]
     Active Substance: SULFAMETHOXAZOLE\TRIMETHOPRIM
     Indication: PROPHYLAXIS
     Dosage: 480 MG, QD
     Route: 065
     Dates: start: 201811
  4. ACICLOVIR [Concomitant]
     Active Substance: ACYCLOVIR
     Indication: PROPHYLAXIS
     Dosage: 400 MG, QD (2X200MG/DAY)
     Route: 065
     Dates: start: 201811
  5. LEMTRADA [Suspect]
     Active Substance: ALEMTUZUMAB
     Dosage: 12 MG
     Route: 041
     Dates: start: 201712
  6. OCREVUS [Suspect]
     Active Substance: OCRELIZUMAB
     Indication: MULTIPLE SCLEROSIS
     Dosage: UNK
     Route: 065
     Dates: start: 201811, end: 202006

REACTIONS (9)
  - Condition aggravated [Unknown]
  - Sepsis [Unknown]
  - Magnetic resonance imaging abnormal [Unknown]
  - Death [Fatal]
  - JC polyomavirus test positive [Unknown]
  - Gait disturbance [Unknown]
  - Multiple sclerosis [Recovering/Resolving]
  - Bladder disorder [Unknown]
  - CD4 lymphocytes decreased [Unknown]

NARRATIVE: CASE EVENT DATE: 201809
